FAERS Safety Report 12632154 (Version 2)
Quarter: 2016Q3

REPORT INFORMATION
  Report Type: Spontaneous
  Country: US (occurrence: US)
  Receive Date: 20160808
  Receipt Date: 20160808
  Transmission Date: 20161109
  Serious: No
  Sender: FDA-Public Use
  Company Number: US-BEH-2016061996

PATIENT
  Sex: Female
  Weight: 70 kg

DRUGS (12)
  1. SENNA [Concomitant]
     Active Substance: SENNA LEAF\SENNOSIDES\SENNOSIDES A AND B
  2. DIPHENHYDRAMINE. [Concomitant]
     Active Substance: DIPHENHYDRAMINE
  3. EPIPEN [Concomitant]
     Active Substance: EPINEPHRINE
  4. FLINTSTONES [Concomitant]
  5. MISOPROSTOL. [Concomitant]
     Active Substance: MISOPROSTOL
  6. MOTRIN [Concomitant]
     Active Substance: IBUPROFEN
  7. HIZENTRA [Suspect]
     Active Substance: HUMAN IMMUNOGLOBULIN G
     Indication: HYPOGAMMAGLOBULINAEMIA
     Route: 058
     Dates: start: 20101019
  8. CYTOTEC [Concomitant]
     Active Substance: MISOPROSTOL
  9. AUGMENTIN [Concomitant]
     Active Substance: AMOXICILLIN\CLAVULANATE POTASSIUM
  10. AMOXICILLIN. [Concomitant]
     Active Substance: AMOXICILLIN
  11. LIDOCAINE/PRILOCAINE [Concomitant]
     Active Substance: LIDOCAINE\PRILOCAINE
  12. PRILOSEC [Concomitant]
     Active Substance: OMEPRAZOLE MAGNESIUM

REACTIONS (2)
  - Cough [Unknown]
  - Upper respiratory tract infection [Unknown]
